FAERS Safety Report 9491580 (Version 3)
Quarter: 2014Q2

REPORT INFORMATION
  Report Type: Report from Study
  Country: GB (occurrence: GB)
  Receive Date: 20130830
  Receipt Date: 20140404
  Transmission Date: 20141212
  Serious: Yes (Death, Hospitalization)
  Sender: FDA-Public Use
  Company Number: GB-ROCHE-1268135

PATIENT
  Age: 99 Year
  Sex: Female

DRUGS (4)
  1. RANIBIZUMAB [Suspect]
     Indication: PRODUCT USED FOR UNKNOWN INDICATION
     Route: 050
     Dates: start: 20101215
  2. RANIBIZUMAB [Suspect]
     Route: 050
     Dates: start: 20120110
  3. RANIBIZUMAB [Suspect]
     Route: 050
     Dates: start: 20121120
  4. RANIBIZUMAB [Suspect]
     Route: 050
     Dates: start: 20130626

REACTIONS (5)
  - Death [Fatal]
  - Cellulitis [Fatal]
  - Sepsis [Fatal]
  - Peripheral swelling [Unknown]
  - General physical health deterioration [Not Recovered/Not Resolved]
